FAERS Safety Report 8842542 (Version 4)
Quarter: 2013Q2

REPORT INFORMATION
  Report Type: Report from Study
  Country: DE (occurrence: DE)
  Receive Date: 20121016
  Receipt Date: 20130521
  Transmission Date: 20140414
  Serious: Yes (Hospitalization)
  Sender: FDA-Public Use
  Company Number: DE-GENZYME-THYM-1003441

PATIENT
  Age: 59 Year
  Sex: Male
  Weight: 97.5 kg

DRUGS (4)
  1. THYMOGLOBULINE [Suspect]
     Indication: IMMUNOSUPPRESSION
     Dosage: 140 MG, QD
     Route: 042
     Dates: start: 20120917
  2. TACROLIMUS [Suspect]
     Indication: IMMUNOSUPPRESSION
     Dosage: 15 MG, QD
     Route: 048
     Dates: start: 20120917
  3. CELLCEPT [Suspect]
     Indication: IMMUNOSUPPRESSION
     Dosage: 1000 MG, BID
     Route: 048
     Dates: start: 20120917
  4. DECORTIN H [Suspect]
     Indication: IMMUNOSUPPRESSION
     Dosage: 25 MG, QD
     Route: 048
     Dates: start: 20120917

REACTIONS (1)
  - Kidney transplant rejection [Recovered/Resolved]
